FAERS Safety Report 16590547 (Version 1)
Quarter: 2019Q3

REPORT INFORMATION
  Report Type: Spontaneous
  Country: US (occurrence: US)
  Receive Date: 20190604
  Receipt Date: 20190604
  Transmission Date: 20191004
  Serious: No
  Sender: FDA-Public Use
  Company Number: None

PATIENT
  Sex: Male

DRUGS (3)
  1. NAPROXEN. [Suspect]
     Active Substance: NAPROXEN
  2. VYVANSE [Suspect]
     Active Substance: LISDEXAMFETAMINE DIMESYLATE
  3. DOXYCYCLINE. [Suspect]
     Active Substance: DOXYCYCLINE

REACTIONS (4)
  - Wrong product administered [None]
  - Abdominal pain upper [None]
  - Dizziness [None]
  - Product dispensing error [None]

NARRATIVE: CASE EVENT DATE: 2019
